FAERS Safety Report 21866694 (Version 1)
Quarter: 2023Q1

REPORT INFORMATION
  Report Type: Spontaneous
  Country: US (occurrence: US)
  Receive Date: 20230116
  Receipt Date: 20230116
  Transmission Date: 20230418
  Serious: No
  Sender: FDA-Public Use
  Company Number: US-ELI_LILLY_AND_COMPANY-US202301006336

PATIENT
  Sex: Female

DRUGS (3)
  1. TRULICITY [Suspect]
     Active Substance: DULAGLUTIDE
     Indication: Type 2 diabetes mellitus
     Dosage: 1.5 MG, UNKNOWN
     Route: 058
  2. TRULICITY [Suspect]
     Active Substance: DULAGLUTIDE
     Indication: Type 2 diabetes mellitus
     Dosage: 3 MG, UNKNOWN
     Route: 065
     Dates: start: 20221229
  3. METFORMIN [Concomitant]
     Active Substance: METFORMIN HYDROCHLORIDE
     Indication: Type 2 diabetes mellitus
     Dosage: 1000 MG, BID (500 MG, 2 PILLS)
     Route: 065

REACTIONS (9)
  - Hypersensitivity [Unknown]
  - Irritable bowel syndrome [Unknown]
  - Dizziness [Unknown]
  - Gait disturbance [Unknown]
  - Tremor [Unknown]
  - Burning sensation [Unknown]
  - Peripheral coldness [Unknown]
  - Hypoacusis [Unknown]
  - Vertigo [Unknown]
